FAERS Safety Report 9750843 (Version 2)
Quarter: 2013Q4

REPORT INFORMATION
  Report Type: Spontaneous
  Country: US (occurrence: US)
  Receive Date: 20131212
  Receipt Date: 20131212
  Transmission Date: 20140711
  Serious: Yes (Disabling)
  Sender: FDA-Public Use
  Company Number: US-GE HEALTHCARE MEDICAL DIAGNOSTICS-OSCN-PR-0906S-0290

PATIENT
  Age: 43 Year
  Sex: Male

DRUGS (12)
  1. OMNISCAN [Suspect]
     Indication: ARTHRALGIA
     Dates: start: 19990123, end: 19990123
  2. OMNISCAN [Suspect]
     Indication: CEREBROVASCULAR DISORDER
     Dates: start: 20011111, end: 20011111
  3. OMNISCAN [Suspect]
     Indication: SPINAL OSTEOARTHRITIS
     Dates: start: 20021022, end: 20021022
  4. OMNISCAN [Suspect]
     Indication: PAIN IN EXTREMITY
     Dates: start: 20040923, end: 20040923
  5. OMNISCAN [Suspect]
     Indication: SPINAL PAIN
  6. MAGNEVIST [Suspect]
     Indication: CEREBROVASCULAR DISORDER
     Dates: start: 20021022, end: 20021022
  7. MAGNEVIST [Suspect]
     Indication: SPINAL OSTEOARTHRITIS
  8. FOSAMAX [Concomitant]
  9. OMNIPAQUE 350 [Concomitant]
     Indication: COMPUTERISED TOMOGRAM
     Dates: start: 19991104, end: 19991104
  10. OMNIPAQUE 350 [Concomitant]
     Indication: COMPUTERISED TOMOGRAM
     Dates: start: 20011105, end: 20011105
  11. OMNIPAQUE 350 [Concomitant]
     Indication: COMPUTERISED TOMOGRAM
     Dates: start: 20011114, end: 20011114
  12. PHENERGAN [Concomitant]

REACTIONS (1)
  - Nephrogenic systemic fibrosis [Not Recovered/Not Resolved]
